FAERS Safety Report 5565174-8 (Version None)
Quarter: 2007Q4

REPORT INFORMATION
  Report Type: 
  Country: None (occurrence: None)
  Receive Date: 20071213
  Receipt Date: 20071213
  Transmission Date: 20080405
  Serious: Yes (Other)
  Sender: FDA-Public Use
  Company Number: None

PATIENT
  Age: 28 Year
  Sex: Female
  Weight: 99.7913 kg

DRUGS (2)
  1. CELLCEPT [Suspect]
     Indication: BRACHIAL PLEXOPATHY
     Dosage: 500MG X2 TWICE DAILY PO
     Route: 048
  2. CELLCEPT [Suspect]
     Indication: BRACHIAL PLEXOPATHY
     Dosage: 500MG X2 TWICE DAILY PO
     Route: 048
     Dates: start: 20071201

REACTIONS (1)
  - ACNE [None]
